FAERS Safety Report 5838038-X (Version None)
Quarter: 2008Q3

REPORT INFORMATION
  Report Type: 
  Country: None (occurrence: None)
  Receive Date: 20080808
  Receipt Date: 20080325
  Transmission Date: 20090109
  Serious: No
  Sender: FDA-Public Use
  Company Number: A0717349A

PATIENT
  Age: 52 Year
  Sex: Female

DRUGS (3)
  1. PAXIL [Suspect]
     Dosage: 10MG PER DAY
     Route: 048
     Dates: start: 19990601, end: 20060101
  2. PAROXETINE HCL [Suspect]
     Dosage: 5MG PER DAY
     Route: 048
  3. LEVOXYL [Concomitant]

REACTIONS (6)
  - DRUG ADMINISTRATION ERROR [None]
  - HOT FLUSH [None]
  - HYPERHIDROSIS [None]
  - INSOMNIA [None]
  - NIGHTMARE [None]
  - SLEEP DISORDER [None]
